FAERS Safety Report 25231065 (Version 2)
Quarter: 2025Q2

REPORT INFORMATION
  Report Type: Spontaneous
  Country: US (occurrence: US)
  Receive Date: 20250423
  Receipt Date: 20250521
  Transmission Date: 20250717
  Serious: No
  Sender: SANOFI AVENTIS
  Company Number: US-SA-2025SA117548

PATIENT
  Sex: Male

DRUGS (15)
  1. DUPIXENT [Suspect]
     Active Substance: DUPILUMAB
     Indication: Dermatitis atopic
     Dosage: 300 MG, QOW
     Route: 058
  2. BETAMETHASONE [Concomitant]
     Active Substance: BETAMETHASONE
  3. IBUPROFEN [Concomitant]
     Active Substance: IBUPROFEN
  4. LUTEIN [Concomitant]
     Active Substance: LUTEIN
  5. VITAMINS NOS [Concomitant]
     Active Substance: VITAMINS
  6. ABRYSVO [Concomitant]
     Active Substance: RECOMBINANT STABILIZED RSV A PREFUSION F ANTIGEN\RECOMBINANT STABILIZED RSV B PREFUSION F ANTIGEN
  7. ATORVASTATIN [Concomitant]
     Active Substance: ATORVASTATIN
  8. BOOSTRIX [Concomitant]
     Active Substance: TETANUS TOXOID, REDUCED DIPHTHERIA TOXOID AND ACELLULAR PERTUSSIS VACCINE, ADSORBED ANTIGENS
  9. FLUOROURACIL [Concomitant]
     Active Substance: FLUOROURACIL
  10. HYDROXYZINE [Concomitant]
     Active Substance: HYDROXYZINE HYDROCHLORIDE
  11. METRONIDAZOLE [Concomitant]
     Active Substance: METRONIDAZOLE
  12. PEG-3350 AND ELECTROLYTES [Concomitant]
     Active Substance: POLYETHYLENE GLYCOL 3350\POTASSIUM CHLORIDE\SODIUM BICARBONATE\SODIUM CHLORIDE\SODIUM SULFATE
  13. PREDNISONE [Concomitant]
     Active Substance: PREDNISONE
  14. TELMISARTAN [Concomitant]
     Active Substance: TELMISARTAN
  15. Triamcinolon [Concomitant]

REACTIONS (1)
  - Drug ineffective [Unknown]
